FAERS Safety Report 5117455-X (Version None)
Quarter: 2006Q3

REPORT INFORMATION
  Report Type: 
  Country: None (occurrence: None)
  Receive Date: 20060926
  Receipt Date: 20060906
  Transmission Date: 20061208
  Serious: Yes (Life-Threatening, Hospitalization)
  Sender: FDA-Public Use
  Company Number: US200609001213

PATIENT
  Age: 40 Year
  Sex: Female
  Weight: 67.1 kg

DRUGS (1)
  1. CYMBALTA [Suspect]
     Indication: BIPOLAR DISORDER
     Dosage: 60 MG, 2/D, ORAL
     Route: 048
     Dates: start: 20060725, end: 20060813

REACTIONS (22)
  - ANAPHYLACTIC SHOCK [None]
  - APHASIA [None]
  - ASTHMA [None]
  - BALANCE DISORDER [None]
  - BLOOD GLUCOSE INCREASED [None]
  - BLOOD PRESSURE INCREASED [None]
  - BLOOD TEST ABNORMAL [None]
  - BURNING SENSATION [None]
  - DIPLOPIA [None]
  - DIZZINESS [None]
  - DYSPNOEA [None]
  - GAIT DISTURBANCE [None]
  - GLOSSODYNIA [None]
  - HYPERSENSITIVITY [None]
  - MIGRAINE [None]
  - NIGHT SWEATS [None]
  - NIGHTMARE [None]
  - PALPITATIONS [None]
  - PANIC ATTACK [None]
  - PRURITUS [None]
  - SPEECH DISORDER [None]
  - TREMOR [None]
